FAERS Safety Report 18745293 (Version 2)
Quarter: 2021Q1

REPORT INFORMATION
  Report Type: Spontaneous
  Country: US (occurrence: US)
  Receive Date: 20210115
  Receipt Date: 20210303
  Transmission Date: 20210419
  Serious: Yes (Other)
  Sender: FDA-Public Use
  Company Number: US-PFIZER INC-2021008728

PATIENT
  Age: 10 Year
  Sex: Male
  Weight: 27.67 kg

DRUGS (2)
  1. GENOTROPIN [Suspect]
     Active Substance: SOMATROPIN
     Indication: GROWTH HORMONE DEFICIENCY
     Dosage: UNK
     Dates: end: 202008
  2. GENOTROPIN [Suspect]
     Active Substance: SOMATROPIN
     Indication: GROWTH HORMONE DEFICIENCY
     Dosage: UNK

REACTIONS (7)
  - Failure to thrive [Unknown]
  - Decreased appetite [Unknown]
  - Hyperthyroidism [Unknown]
  - Skin fragility [Unknown]
  - Contusion [Not Recovered/Not Resolved]
  - Weight decreased [Unknown]
  - Injection site bruising [Not Recovered/Not Resolved]

NARRATIVE: CASE EVENT DATE: 2020
